FAERS Safety Report 7392002-0 (Version None)
Quarter: 2011Q2

REPORT INFORMATION
  Report Type: 
  Country: None (occurrence: None)
  Receive Date: 20110404
  Receipt Date: 20110325
  Transmission Date: 20111010
  Serious: Yes (Disabling, Other)
  Sender: FDA-Public Use
  Company Number: US-BRACCO-005149

PATIENT
  Sex: Male
  Weight: 70 kg

DRUGS (33)
  1. PLAVIX [Concomitant]
  2. OPTIMARK [Suspect]
  3. OMNISCAN [Suspect]
     Indication: NUCLEAR MAGNETIC RESONANCE IMAGING
     Route: 065
     Dates: start: 20040713, end: 20040713
  4. CONTRAST MEDIA [Suspect]
     Indication: NUCLEAR MAGNETIC RESONANCE IMAGING
     Dates: start: 20050414, end: 20050414
  5. COZAAR [Concomitant]
  6. CLONIDINE [Concomitant]
  7. AMLODIPINE [Concomitant]
  8. PROHANCE [Suspect]
     Indication: RENAL SCAN
     Route: 065
     Dates: start: 20030703, end: 20030703
  9. OMNISCAN [Suspect]
     Indication: NUCLEAR MAGNETIC RESONANCE IMAGING ABDOMINAL
     Route: 065
     Dates: start: 20040713, end: 20040713
  10. OMNISCAN [Suspect]
     Indication: NECK PAIN
     Route: 065
     Dates: start: 20040713, end: 20040713
  11. RENA-VITE [Concomitant]
  12. FOSRENOL [Concomitant]
  13. HECTOROL [Concomitant]
  14. METOPROLOL [Concomitant]
  15. FOLTX [Concomitant]
  16. LISINOPRIL [Concomitant]
  17. PROHANCE [Suspect]
     Indication: NUCLEAR MAGNETIC RESONANCE IMAGING
     Route: 065
     Dates: start: 20050414, end: 20050414
  18. PROHANCE [Suspect]
     Indication: RENAL MASS
     Route: 065
     Dates: start: 20030703, end: 20030703
  19. OMNISCAN [Suspect]
     Indication: NUCLEAR MAGNETIC RESONANCE IMAGING BRAIN
     Route: 065
     Dates: start: 20041015, end: 20041015
  20. MULTIHANCE [Suspect]
     Indication: DIAGNOSTIC PROCEDURE
     Route: 065
  21. PROAMATINE [Concomitant]
  22. EPOGEN [Concomitant]
  23. PHOSLO [Concomitant]
  24. ALL OTHER THERAPEUTIC PRODUCTS [Concomitant]
  25. MAGNEVIST [Suspect]
  26. OMNISCAN [Suspect]
     Indication: OSTEOMYELITIS
     Route: 065
     Dates: start: 20040713, end: 20040713
  27. CONTRAST MEDIA [Suspect]
     Indication: DECUBITUS ULCER
     Dates: start: 20050414, end: 20050414
  28. RENAGEL [Concomitant]
  29. OMNISCAN [Suspect]
     Indication: LIVER DISORDER
     Route: 065
     Dates: start: 20040713, end: 20040713
  30. SENSIPAR [Concomitant]
  31. CALCITRIOL [Concomitant]
  32. OSCAL [Concomitant]
  33. IRON [Concomitant]

REACTIONS (1)
  - NEPHROGENIC SYSTEMIC FIBROSIS [None]
